FAERS Safety Report 10556904 (Version 1)
Quarter: 2014Q4

REPORT INFORMATION
  Report Type: Spontaneous
  Country: US (occurrence: None)
  Receive Date: 20141029
  Receipt Date: 20141029
  Transmission Date: 20150529
  Serious: Yes (Other)
  Sender: FDA-Public Use
  Company Number: 20140673

PATIENT
  Age: 33 Year
  Sex: Male

DRUGS (3)
  1. ROPIVACAINE [Suspect]
     Active Substance: ROPIVACAINE
     Indication: NERVE BLOCK
  2. EPINEPHRINE (ADREALINE) [Concomitant]
  3. LIDOCAINE HCL [Suspect]
     Active Substance: LIDOCAINE HYDROCHLORIDE
     Indication: NERVE BLOCK

REACTIONS (4)
  - Eyelid ptosis [None]
  - Horner^s syndrome [None]
  - Vision blurred [None]
  - Anaesthetic complication [None]
